FAERS Safety Report 22192225 (Version 1)
Quarter: 2023Q2

REPORT INFORMATION
  Report Type: Report from Study
  Country: US (occurrence: US)
  Receive Date: 20230410
  Receipt Date: 20230410
  Transmission Date: 20230721
  Serious: Yes (Other)
  Sender: FDA-Public Use
  Company Number: US-UCBSA-2023017968

PATIENT
  Age: 28 Year
  Sex: Male
  Weight: 85.6 kg

DRUGS (2)
  1. LEVETIRACETAM [Suspect]
     Active Substance: LEVETIRACETAM
     Indication: Seizure
     Dosage: 500 MILLIGRAM, 2X/DAY (BID)
  2. BRIVIACT [Suspect]
     Active Substance: BRIVARACETAM
     Indication: Product used for unknown indication
     Dosage: 75 MILLIGRAM, 2X/DAY (BID)
     Route: 048
     Dates: start: 20230221

REACTIONS (9)
  - Epilepsy [Unknown]
  - Seizure [Unknown]
  - Partial seizures [Unknown]
  - Mood altered [Unknown]
  - Automatism [Unknown]
  - Stress [Unknown]
  - Drooling [Unknown]
  - Deja vu [Unknown]
  - Snoring [Unknown]

NARRATIVE: CASE EVENT DATE: 20201215
